FAERS Safety Report 5853314-2 (Version None)
Quarter: 2008Q3

REPORT INFORMATION
  Report Type: 
  Country: None (occurrence: None)
  Receive Date: 20080820
  Receipt Date: 20080805
  Transmission Date: 20090109
  Serious: Yes (Hospitalization)
  Sender: FDA-Public Use
  Company Number: 2007US001518

PATIENT
  Age: 52 Year
  Sex: Female
  Weight: 103.4 kg

DRUGS (1)
  1. AMEVIVE [Suspect]
     Indication: PSORIASIS
     Dosage: 15 MG WEEKLY INTRAMUSCULAR
     Route: 030
     Dates: start: 20050509, end: 20060117

REACTIONS (3)
  - BIPOLAR DISORDER [None]
  - MENTAL DISORDER [None]
  - SUICIDAL IDEATION [None]
